FAERS Safety Report 9692925 (Version 1)
Quarter: 2013Q4

REPORT INFORMATION
  Report Type: Spontaneous
  Country: US (occurrence: US)
  Receive Date: 20131118
  Receipt Date: 20131118
  Transmission Date: 20140711
  Serious: No
  Sender: FDA-Public Use
  Company Number: US-GLAXOSMITHKLINE-A1010086A

PATIENT
  Age: 57 Year
  Sex: Female

DRUGS (5)
  1. COREG CR [Suspect]
     Indication: HYPERTENSION
     Dosage: 80MG PER DAY
     Route: 048
     Dates: start: 2006
  2. ARMOUR THYROID [Concomitant]
  3. OTC VITAMINS [Concomitant]
  4. HORMONE REPLACEMENT [Concomitant]
  5. ACIPHEX [Concomitant]

REACTIONS (5)
  - Arthralgia [Not Recovered/Not Resolved]
  - Red blood cell sedimentation rate increased [Unknown]
  - Pain [Unknown]
  - Chest pain [Unknown]
  - Burning sensation [Unknown]
